FAERS Safety Report 10365362 (Version 2)
Quarter: 2014Q3

REPORT INFORMATION
  Report Type: Spontaneous
  Country: JP (occurrence: JP)
  Receive Date: 20140806
  Receipt Date: 20140806
  Transmission Date: 20150326
  Serious: Yes (Hospitalization)
  Sender: FDA-Public Use
  Company Number: JP-B.I. PHARMACEUTICALS,INC./RIDGEFIELD-2014-BI-31666NB

PATIENT
  Age: 70 Year
  Sex: Female

DRUGS (5)
  1. BI-SIFROL [Suspect]
     Active Substance: PRAMIPEXOLE
     Indication: PARKINSON^S DISEASE
     Dosage: 4 MG
     Route: 065
  2. BI-SIFROL [Suspect]
     Active Substance: PRAMIPEXOLE
     Dosage: 3 MG
     Route: 065
  3. COMTAN [Suspect]
     Active Substance: ENTACAPONE
     Indication: PRODUCT USED FOR UNKNOWN INDICATION
     Route: 048
  4. FP [Suspect]
     Active Substance: SELEGILINE HYDROCHLORIDE
     Indication: PRODUCT USED FOR UNKNOWN INDICATION
     Route: 048
  5. DOPACOL [Suspect]
     Active Substance: CARBIDOPA\LEVODOPA
     Indication: PRODUCT USED FOR UNKNOWN INDICATION
     Route: 048

REACTIONS (3)
  - Parkinson^s disease [Unknown]
  - Poriomania [Not Recovered/Not Resolved]
  - Hallucination [Not Recovered/Not Resolved]

NARRATIVE: CASE EVENT DATE: 20140703
